FAERS Safety Report 18945284 (Version 1)
Quarter: 2021Q1

REPORT INFORMATION
  Report Type: Report from Study
  Country: AU (occurrence: AU)
  Receive Date: 20210226
  Receipt Date: 20210226
  Transmission Date: 20210420
  Serious: Yes (Other)
  Sender: FDA-Public Use
  Company Number: AU-REGENERON PHARMACEUTICALS, INC.-2020-73397

PATIENT

DRUGS (4)
  1. EYLEA [Suspect]
     Active Substance: AFLIBERCEPT
     Dosage: 1 DF Q6WK, INJECTION TO RIGHT EYE
     Route: 031
  2. EYLEA [Suspect]
     Active Substance: AFLIBERCEPT
     Indication: NEOVASCULAR AGE-RELATED MACULAR DEGENERATION
     Dosage: 1 DF Q4WK, INJECTION TO RIGHT EYE
     Route: 031
     Dates: start: 202003
  3. EYLEA [Suspect]
     Active Substance: AFLIBERCEPT
     Dosage: 1 DF Q6WK, INJECTION TO RIGHT EYE
     Route: 031
  4. EYLEA [Suspect]
     Active Substance: AFLIBERCEPT
     Dosage: 1 DF (OD?  INTERVAL OF 20 WEEKS)
     Route: 031

REACTIONS (6)
  - Injection site pain [Recovered/Resolved]
  - Inappropriate schedule of product administration [Unknown]
  - Chloropsia [Recovered/Resolved]
  - Eye inflammation [Unknown]
  - Injection site irritation [Unknown]
  - Visual impairment [Unknown]

NARRATIVE: CASE EVENT DATE: 20210217
